FAERS Safety Report 12257496 (Version 2)
Quarter: 2016Q2

REPORT INFORMATION
  Report Type: Spontaneous
  Country: FR (occurrence: FR)
  Receive Date: 20160412
  Receipt Date: 20160421
  Transmission Date: 20160815
  Serious: Yes (Hospitalization)
  Sender: FDA-Public Use
  Company Number: FR-INDIVIOR LIMITED-INDV-089516-2016

PATIENT
  Age: 38 Year
  Sex: Male

DRUGS (3)
  1. TASIGNA [Concomitant]
     Active Substance: NILOTINIB
     Indication: PRODUCT USED FOR UNKNOWN INDICATION
     Dosage: TWO DOSAGE FORMS, THREE TIMES A DAY
     Route: 065
  2. FUROSEMIDE. [Concomitant]
     Active Substance: FUROSEMIDE
     Indication: PRODUCT USED FOR UNKNOWN INDICATION
     Dosage: 40MG, ONE DOSAGE FORM, DAILY
     Route: 065
  3. SUBUTEX [Suspect]
     Active Substance: BUPRENORPHINE HYDROCHLORIDE
     Indication: DRUG DEPENDENCE
     Dosage: 6 MG, DAILY
     Route: 051

REACTIONS (7)
  - Venous thrombosis [Unknown]
  - Intentional product misuse [Unknown]
  - Clostridium difficile colitis [Unknown]
  - Drug abuse [Unknown]
  - Endocarditis [Unknown]
  - Multiple organ dysfunction syndrome [Unknown]
  - Thrombocytopenia [Unknown]
